FAERS Safety Report 8520717-7 (Version None)
Quarter: 2012Q3

REPORT INFORMATION
  Report Type: 
  Country: None (occurrence: None)
  Receive Date: 20120719
  Receipt Date: 20120614
  Transmission Date: 20120928
  Serious: Yes (Life-Threatening, Hospitalization, Other)
  Sender: FDA-Public Use
  Company Number: US-BRISTOL-MYERS SQUIBB COMPANY-16396467

PATIENT
  Age: 68 Year
  Sex: Male

DRUGS (5)
  1. PROGRAF [Concomitant]
  2. BELATACEPT [Suspect]
     Indication: RENAL TRANSPLANT
     Route: 042
     Dates: start: 20111123, end: 20111215
  3. THYMOGLOBULIN [Concomitant]
  4. PREDNISONE [Concomitant]
  5. CELLCEPT [Concomitant]

REACTIONS (2)
  - RENAL TUBULAR NECROSIS [None]
  - TRANSPLANT REJECTION [None]
